FAERS Safety Report 8256260 (Version 3)
Quarter: 2012Q4

REPORT INFORMATION
  Report Type: Spontaneous
  Country: US (occurrence: US)
  Receive Date: 20111121
  Receipt Date: 20121218
  Transmission Date: 20130627
  Serious: Yes (Death)
  Sender: FDA-Public Use
  Company Number: PHEH2011US009603

PATIENT
  Age: 53 Year
  Sex: Male

DRUGS (1)
  1. ZOMETA (ZOLEDRONATE) UNKNOWN [Suspect]
     Dosage: 4 mg/5ml

REACTIONS (2)
  - Neoplasm progression [Fatal]
  - Neoplasm malignant [Fatal]
